FAERS Safety Report 24727018 (Version 1)
Quarter: 2024Q4

REPORT INFORMATION
  Report Type: Spontaneous
  Country: US (occurrence: None)
  Receive Date: 20241212
  Receipt Date: 20241212
  Transmission Date: 20250114
  Serious: Yes (Hospitalization)
  Sender: Public
  Company Number: None

PATIENT
  Sex: Female

DRUGS (1)
  1. ICATIBANT ACETATE [Suspect]
     Active Substance: ICATIBANT ACETATE
     Indication: Complement factor abnormal
     Dosage: OTHER QUANTITY : 30/3 MG/ML;?FREQUENCY : AS NEEDED;?
     Route: 058
     Dates: start: 202204

REACTIONS (2)
  - Lip swelling [None]
  - Swelling face [None]
